FAERS Safety Report 9913276 (Version 2)
Quarter: 2014Q2

REPORT INFORMATION
  Report Type: Report from Study
  Country: CA (occurrence: CA)
  Receive Date: 20140220
  Receipt Date: 20140624
  Transmission Date: 20141212
  Serious: Yes (Hospitalization)
  Sender: FDA-Public Use
  Company Number: CA-BRISTOL-MYERS SQUIBB COMPANY-20208328

PATIENT
  Age: 70 Year
  Sex: Male

DRUGS (17)
  1. ORENCIA [Suspect]
     Indication: RHEUMATOID ARTHRITIS
     Dosage: INTERUPTED ON DEC13.?LAST DOSE RESUMED:07FEB14
     Dates: start: 20131101
  2. METHOTREXATE [Concomitant]
  3. PLAQUENIL [Concomitant]
  4. ASAPHEN [Concomitant]
  5. PANTOLOC [Concomitant]
  6. FOLIC ACID [Concomitant]
  7. ATIVAN [Concomitant]
  8. ALLOPURINOL [Concomitant]
  9. AMITRIPTYLINE [Concomitant]
  10. VALTREX [Concomitant]
  11. SYNTHROID [Concomitant]
  12. PREDNISONE [Concomitant]
  13. DOCUSATE SODIUM [Concomitant]
  14. HYDRALAZINE [Concomitant]
  15. BISOPROLOL [Concomitant]
  16. CADUET [Concomitant]
  17. DIOVAN [Concomitant]

REACTIONS (2)
  - Myocardial infarction [Unknown]
  - Skin ulcer [Recovered/Resolved]
